FAERS Safety Report 7884440-4 (Version None)
Quarter: 2011Q4

REPORT INFORMATION
  Report Type: 
  Country: None (occurrence: None)
  Receive Date: 20111102
  Receipt Date: 20110902
  Transmission Date: 20120403
  Serious: No
  Sender: FDA-Public Use
  Company Number: US-ASTRAZENECA-2011SE40826

PATIENT
  Age: 54 Year
  Sex: Male
  Weight: 88.2 kg

DRUGS (10)
  1. OMEPRAZOLE [Concomitant]
  2. MULTI-VITAMINS [Concomitant]
  3. LOMOTIL [Concomitant]
     Indication: DIARRHOEA
  4. VITAMIN D [Concomitant]
  5. VITAMIN C CR [Concomitant]
  6. ATROPINE [Concomitant]
     Indication: DIARRHOEA
  7. VITAMIN B COMPLEX CAP [Concomitant]
  8. VANDETANIB [Suspect]
     Indication: THYROID CANCER
     Route: 048
     Dates: start: 20110630
  9. CALCIUM [Concomitant]
  10. LEVOTHYROXINE SODIUM [Concomitant]

REACTIONS (10)
  - DIARRHOEA [None]
  - COUGH [None]
  - MYALGIA [None]
  - DRY MOUTH [None]
  - DRY SKIN [None]
  - MUSCLE SPASMS [None]
  - PALPITATIONS [None]
  - LYMPHADENOPATHY [None]
  - URTICARIA [None]
  - ACNE [None]
